FAERS Safety Report 7286519-7 (Version None)
Quarter: 2011Q1

REPORT INFORMATION
  Report Type: 
  Country: None (occurrence: None)
  Receive Date: 20110210
  Receipt Date: 20110207
  Transmission Date: 20110831
  Serious: Yes (Hospitalization, Other)
  Sender: FDA-Public Use
  Company Number: FR-PFIZER INC-2010143344

PATIENT
  Age: 74 Year
  Sex: Male
  Weight: 79.4 kg

DRUGS (11)
  1. PULMICORT [Concomitant]
  2. EXFORGE [Concomitant]
     Dosage: UNK
     Route: 048
  3. TAZOCILLINE [Suspect]
     Indication: STREPTOCOCCAL INFECTION
  4. CELOCURIN [Concomitant]
     Route: 042
  5. BRICANYL [Concomitant]
  6. TAZOCILLINE [Suspect]
     Indication: LUNG DISORDER
  7. XATRAL - SLOW RELEASE [Concomitant]
     Dosage: UNK
     Route: 048
  8. TAZOCILLINE [Suspect]
     Indication: POST PROCEDURAL INFECTION
     Dosage: UNK
     Route: 042
     Dates: start: 20101030, end: 20101112
  9. ASPIRIN [Concomitant]
  10. ETOMIDATE [Concomitant]
     Route: 042
  11. PAROXETINE HCL [Concomitant]
     Dosage: UNK

REACTIONS (10)
  - ABDOMINAL PAIN [None]
  - CONFUSIONAL STATE [None]
  - HALLUCINATION [None]
  - URINARY RETENTION [None]
  - PROSTATIC ADENOMA [None]
  - AMNESIA [None]
  - GAMMA-GLUTAMYLTRANSFERASE INCREASED [None]
  - CYTOLYTIC HEPATITIS [None]
  - DIARRHOEA [None]
  - FATIGUE [None]
